FAERS Safety Report 18826472 (Version 1)
Quarter: 2021Q1

REPORT INFORMATION
  Report Type: Spontaneous
  Country: FR (occurrence: FR)
  Receive Date: 20210202
  Receipt Date: 20210202
  Transmission Date: 20210419
  Serious: Yes (Other)
  Sender: FDA-Public Use
  Company Number: FR-TEVA-2021-FR-1875126

PATIENT
  Age: 29 Year
  Sex: Male
  Weight: 69 kg

DRUGS (1)
  1. RISPERIDONE TEVA 2 MG, COMPRIME ORODISPERSIBLE [Suspect]
     Active Substance: RISPERIDONE
     Indication: SCHIZOAFFECTIVE DISORDER
     Dosage: 2 MG
     Route: 048
     Dates: start: 20201126, end: 20201130

REACTIONS (1)
  - Therapeutic response changed [Recovered/Resolved]

NARRATIVE: CASE EVENT DATE: 20201126
